FAERS Safety Report 11081154 (Version 1)
Quarter: 2015Q2

REPORT INFORMATION
  Report Type: Spontaneous
  Country: FR (occurrence: FR)
  Receive Date: 20150501
  Receipt Date: 20150501
  Transmission Date: 20150821
  Serious: Yes (Other)
  Sender: FDA-Public Use
  Company Number: FR-MYLANLABS-2015M1014475

PATIENT

DRUGS (2)
  1. LEVETIRACETAM. [Suspect]
     Active Substance: LEVETIRACETAM
     Dosage: 750MG TWICE A DAY
     Route: 065
     Dates: start: 20140918
  2. LEVETIRACETAM. [Suspect]
     Active Substance: LEVETIRACETAM
     Indication: EPILEPSY
     Dosage: 500MG TWICE A DAY
     Route: 065
     Dates: start: 20140913

REACTIONS (2)
  - Suicide attempt [Recovering/Resolving]
  - Mental disorder [Recovering/Resolving]
